FAERS Safety Report 19818565 (Version 1)
Quarter: 2021Q3

REPORT INFORMATION
  Report Type: Spontaneous
  Country: CA (occurrence: CA)
  Receive Date: 20210912
  Receipt Date: 20210912
  Transmission Date: 20211014
  Serious: Yes (Life-Threatening, Hospitalization)
  Sender: FDA-Public Use
  Company Number: CA-TEVA-2021-CA-1950961

PATIENT
  Age: 69 Year
  Sex: Male
  Weight: 65 kg

DRUGS (2)
  1. CARBOPLATIN NJECTION [Suspect]
     Active Substance: CARBOPLATIN
     Route: 042
  2. VINBLASTINE SULFATE INJECTION [Concomitant]
     Active Substance: VINBLASTINE SULFATE

REACTIONS (4)
  - Chest pain [Recovered/Resolved]
  - Dyspnoea [Recovered/Resolved]
  - Endotracheal intubation [Recovered/Resolved]
  - Chest discomfort [Recovered/Resolved]
